FAERS Safety Report 7867117-0 (Version None)
Quarter: 2011Q4

REPORT INFORMATION
  Report Type: 
  Country: None (occurrence: None)
  Receive Date: 20111028
  Receipt Date: 20111023
  Transmission Date: 20120403
  Serious: Yes (Hospitalization)
  Sender: FDA-Public Use
  Company Number: ET-BRISTOL-MYERS SQUIBB COMPANY-16101750

PATIENT
  Age: 35 Year
  Sex: Male

DRUGS (2)
  1. TASIGNA [Suspect]
     Indication: CHRONIC MYELOID LEUKAEMIA
     Dosage: TOOK 200MG FOR 10 DAYS IN AUG2011, INTERRUPTED ON SEP-2011.
  2. SPRYCEL [Suspect]
     Indication: CHRONIC MYELOID LEUKAEMIA
     Dosage: 100 MG ERRONEOUSLY-10 DAYS IN AUG2011. STARTED APPROX 1 YEAR AGO.
     Route: 048
     Dates: end: 20110901

REACTIONS (3)
  - MEDICATION ERROR [None]
  - PANCYTOPENIA [None]
  - ORAL HERPES [None]
